FAERS Safety Report 9732237 (Version 2)
Quarter: 2013Q4

REPORT INFORMATION
  Report Type: Report from Study
  Country: US (occurrence: US)
  Receive Date: 20131204
  Receipt Date: 20131217
  Transmission Date: 20140711
  Serious: Yes (Other)
  Sender: FDA-Public Use
  Company Number: US-BAXTER-2013BAX047742

PATIENT
  Age: 49 Year
  Sex: Female

DRUGS (6)
  1. GAMMAGARD LIQUID [Suspect]
     Indication: PRODUCT USED FOR UNKNOWN INDICATION
     Route: 042
  2. GAMMAGARD LIQUID [Suspect]
     Route: 058
  3. GAMMAGARD LIQUID [Suspect]
     Route: 042
  4. OCTAGAM [Concomitant]
     Indication: PRODUCT USED FOR UNKNOWN INDICATION
     Route: 042
  5. VIVAGLOBIN [Concomitant]
     Indication: PRODUCT USED FOR UNKNOWN INDICATION
     Route: 058
     Dates: end: 201007
  6. HIZENTRA [Concomitant]
     Indication: PRODUCT USED FOR UNKNOWN INDICATION
     Route: 058
     Dates: start: 201007

REACTIONS (3)
  - Urinary tract infection [Recovered/Resolved]
  - Vulvovaginitis streptococcal [Not Recovered/Not Resolved]
  - Medical device complication [Recovered/Resolved]
